FAERS Safety Report 21671165 (Version 1)
Quarter: 2022Q4

REPORT INFORMATION
  Report Type: Spontaneous
  Country: CN (occurrence: None)
  Receive Date: 20221202
  Receipt Date: 20221202
  Transmission Date: 20230113
  Serious: Yes (Other)
  Sender: FDA-Public Use
  Company Number: CN-ROCHE-3226907

PATIENT
  Age: 40 Year
  Sex: Female

DRUGS (9)
  1. HERCEPTIN [Suspect]
     Active Substance: TRASTUZUMAB
     Indication: Invasive breast carcinoma
     Route: 065
     Dates: start: 20220530
  2. HERCEPTIN [Suspect]
     Active Substance: TRASTUZUMAB
     Dosage: ON 22/JUN/2022, 13/JUL/2022, 04/AUG/2022, 25/AUG/2022, 13/SEP/2022
     Route: 065
  3. HERCEPTIN [Suspect]
     Active Substance: TRASTUZUMAB
     Dosage: POSTOPERATIVE ADJUVANT THERAPY
     Route: 065
     Dates: start: 20221003
  4. PERJETA [Suspect]
     Active Substance: PERTUZUMAB
     Indication: Invasive breast carcinoma
     Route: 065
     Dates: start: 20220530
  5. PERJETA [Suspect]
     Active Substance: PERTUZUMAB
     Dosage: ON 22/JUN/2022, 13/JULY/2022, 04/AUG/2022, 25/AUG/2022, 13/SEP/2022
     Route: 065
  6. PERJETA [Suspect]
     Active Substance: PERTUZUMAB
     Dosage: POSTOPERATIVE ADJUVANT THERAPY
     Route: 065
     Dates: start: 20221003
  7. KADCYLA [Suspect]
     Active Substance: ADO-TRASTUZUMAB EMTANSINE
     Indication: Invasive breast carcinoma
     Route: 065
     Dates: start: 20221101
  8. DOCETAXEL [Concomitant]
     Active Substance: DOCETAXEL
     Indication: Invasive breast carcinoma
     Dates: start: 20220530
  9. CARBOPLATIN [Concomitant]
     Active Substance: CARBOPLATIN
     Dates: start: 20220530

REACTIONS (2)
  - Myelosuppression [Unknown]
  - Gastrointestinal disorder [Unknown]
